FAERS Safety Report 18778067 (Version 2)
Quarter: 2021Q1

REPORT INFORMATION
  Report Type: Report from Study
  Country: None (occurrence: US)
  Receive Date: 20210122
  Receipt Date: 20210126
  Transmission Date: 20210419
  Serious: Yes (Hospitalization)
  Sender: FDA-Public Use
  Company Number: US-ABBVIE-20K-163-3618811-00

PATIENT
  Age: 70 Year
  Sex: Female
  Weight: 73.55 kg

DRUGS (2)
  1. HUMIRA [Suspect]
     Active Substance: ADALIMUMAB
     Dosage: CITRATE?FREE?DOSE INCREASED
     Route: 058
     Dates: start: 202010
  2. HUMIRA [Suspect]
     Active Substance: ADALIMUMAB
     Indication: CROHN^S DISEASE
     Dosage: CITRATE?FREE
     Route: 058
     Dates: start: 202004, end: 202010

REACTIONS (4)
  - Small intestinal obstruction [Unknown]
  - Abdominal distension [Unknown]
  - White blood cell count increased [Unknown]
  - Crohn^s disease [Unknown]

NARRATIVE: CASE EVENT DATE: 202010
